FAERS Safety Report 9681619 (Version 2)
Quarter: 2013Q4

REPORT INFORMATION
  Report Type: Report from Study
  Country: US (occurrence: US)
  Receive Date: 20131111
  Receipt Date: 20131111
  Transmission Date: 20140711
  Serious: Yes (Hospitalization, Other)
  Sender: FDA-Public Use
  Company Number: US-SA-LEUK-1000148

PATIENT
  Age: 77 Year
  Sex: Male
  Weight: 102.3 kg

DRUGS (37)
  1. SARGRAMOSTIM [Suspect]
     Indication: MALIGNANT MELANOMA
     Dosage: 250 MCG, QD
     Route: 059
     Dates: start: 20110318, end: 20110331
  2. SARGRAMOSTIM [Suspect]
     Indication: MALIGNANT MELANOMA
     Dosage: 250 MCG, QD
     Route: 059
     Dates: start: 20110408, end: 20110421
  3. SARGRAMOSTIM [Suspect]
     Indication: MALIGNANT MELANOMA
     Dosage: TOTAL DOSE: 3.5 MG
     Route: 058
     Dates: start: 20111210
  4. SARGRAMOSTIM [Suspect]
     Indication: MALIGNANT MELANOMA
     Dosage: 250 MCG, QD
     Route: 059
     Dates: start: 20110429, end: 20110512
  5. SARGRAMOSTIM [Suspect]
     Indication: MALIGNANT MELANOMA
     Dosage: 250 MCG, QD
     Route: 059
     Dates: start: 20110520, end: 20110602
  6. SARGRAMOSTIM [Suspect]
     Indication: MALIGNANT MELANOMA
     Dosage: 250 MCG, QD
     Route: 059
     Dates: start: 20110923, end: 20111006
  7. SARGRAMOSTIM [Suspect]
     Indication: MALIGNANT MELANOMA
     Dosage: 250 MCG, QD
     Route: 059
     Dates: start: 20110610, end: 20110623
  8. SARGRAMOSTIM [Suspect]
     Indication: MALIGNANT MELANOMA
     Dosage: 250 MCG, QD
     Route: 059
     Dates: start: 20110624, end: 20110707
  9. SARGRAMOSTIM [Suspect]
     Indication: MALIGNANT MELANOMA
     Dosage: 250 MCG, QD
     Route: 059
     Dates: start: 20110826, end: 20110908
  10. SARGRAMOSTIM [Suspect]
     Indication: MALIGNANT MELANOMA
     Dosage: 250 MCG, QD
     Route: 059
     Dates: start: 20110805, end: 20110818
  11. SARGRAMOSTIM [Suspect]
     Indication: MALIGNANT MELANOMA
     Dosage: 250 MCG, QD
     Route: 059
     Dates: start: 20110715, end: 20110728
  12. SARGRAMOSTIM [Suspect]
     Indication: MALIGNANT MELANOMA
     Dosage: 250 MCG, QD
     Route: 059
     Dates: start: 20121207, end: 20121228
  13. IPILIMUMAB [Suspect]
     Indication: MALIGNANT MELANOMA
     Dosage: 10 MG/KG, ONCE
     Route: 042
     Dates: start: 20110318, end: 20120408
  14. IPILIMUMAB [Suspect]
     Indication: MALIGNANT MELANOMA
     Dosage: 10 MG/KG
     Route: 042
     Dates: start: 20110520, end: 20110520
  15. IPILIMUMAB [Suspect]
     Indication: MALIGNANT MELANOMA
     Dosage: 10 MG/KG
     Route: 042
     Dates: start: 20110812, end: 20110812
  16. IPILIMUMAB [Suspect]
     Indication: MALIGNANT MELANOMA
     Dosage: 10 MG/KG, QD (10TH CYCLE)
     Route: 042
     Dates: end: 20121228
  17. IPILIMUMAB [Suspect]
     Indication: MALIGNANT MELANOMA
     Dosage: TOTAL DOSE: 1160 MG
     Route: 042
     Dates: start: 20111210
  18. ASPIRIN [Concomitant]
     Route: 065
  19. ASPIRIN [Concomitant]
     Dosage: 325 MG, QD
     Route: 048
  20. FUROSEMIDE [Concomitant]
     Route: 065
  21. HUMALOG [Concomitant]
     Dosage: 100 U, PRN DOSE:100 UNIT(S)
     Route: 059
  22. HUMALOG [Concomitant]
     Dosage: 10 U, UNK DOSE:10 UNIT(S)
     Route: 065
  23. KLOR-CON [Concomitant]
     Dosage: 20 MEQ, QD
     Route: 048
  24. LANTUS [Concomitant]
     Dosage: 75 U, QD DOSE:75 UNIT(S)
     Route: 059
  25. LANTUS [Concomitant]
     Dosage: 82 U, QD DOSE:82 UNIT(S)
     Route: 059
  26. LANTUS [Concomitant]
     Dosage: 70 U, QD DOSE:70 UNIT(S)
     Route: 065
  27. LISINOPRIL [Concomitant]
     Dosage: 20 MG, QD
     Route: 048
  28. METOPROLOL [Concomitant]
     Dosage: 75 MG, QD
     Route: 048
  29. NIASPAN [Concomitant]
     Dosage: 1000 MG, QD
     Route: 048
  30. PLAVIX [Concomitant]
     Route: 065
  31. PLAVIX [Concomitant]
     Dosage: 75 MG, QD
     Route: 048
  32. SPIRIVA [Concomitant]
     Route: 065
  33. SPIRIVA [Concomitant]
     Dosage: 18 MCG, INHALED DAILY
     Route: 065
  34. HYDROCODONE [Concomitant]
     Dosage: 5-500 1-2 TABS PO
     Route: 048
  35. HYDROCORTISONE [Concomitant]
     Dosage: 60 MG, QD
     Route: 048
  36. ONDANSETRON [Concomitant]
     Dosage: 8 MG, TID
     Route: 048
  37. FISH OIL [Concomitant]
     Dosage: 1 TABLET, QD
     Route: 065

REACTIONS (18)
  - Oedema peripheral [Not Recovered/Not Resolved]
  - Blood creatinine increased [Unknown]
  - Hyperglycaemia [Unknown]
  - Blood uric acid increased [Unknown]
  - Joint range of motion decreased [Unknown]
  - Fatigue [Unknown]
  - Pain in extremity [Unknown]
  - Muscular weakness [Unknown]
  - Local swelling [Unknown]
  - Diarrhoea [Recovered/Resolved]
  - Dizziness [Recovered/Resolved]
  - Rash [Unknown]
  - Lymphocyte count increased [Unknown]
  - Fall [Recovered/Resolved with Sequelae]
  - Dehydration [Recovered/Resolved with Sequelae]
  - Dysgeusia [Recovered/Resolved]
  - Decreased appetite [Recovered/Resolved with Sequelae]
  - Peripheral sensory neuropathy [Not Recovered/Not Resolved]
